FAERS Safety Report 11909250 (Version 1)
Quarter: 2016Q1

REPORT INFORMATION
  Report Type: Spontaneous
  Country: GB (occurrence: GB)
  Receive Date: 20160112
  Receipt Date: 20160112
  Transmission Date: 20160526
  Serious: Yes (Life-Threatening, Hospitalization)
  Sender: FDA-Public Use
  Company Number: GB-ACCORD-036867

PATIENT
  Age: 63 Year
  Sex: Male
  Weight: 78 kg

DRUGS (15)
  1. TIOTROPIUM/TIOTROPIUM BROMIDE [Concomitant]
  2. AMOXICILLIN. [Concomitant]
     Active Substance: AMOXICILLIN
  3. HYOSCINE [Concomitant]
     Active Substance: SCOPOLAMINE
  4. OMEPRAZOLE. [Concomitant]
     Active Substance: OMEPRAZOLE
  5. SYMBICORT [Concomitant]
     Active Substance: BUDESONIDE\FORMOTEROL FUMARATE DIHYDRATE
  6. CHAMPIX [Suspect]
     Active Substance: VARENICLINE TARTRATE
     Indication: SMOKING CESSATION THERAPY
     Route: 048
  7. BISACODYL. [Concomitant]
     Active Substance: BISACODYL
  8. SALBUTAMOL [Concomitant]
     Active Substance: ALBUTEROL
  9. SIMVASTATIN. [Concomitant]
     Active Substance: SIMVASTATIN
  10. FENTANYL. [Concomitant]
     Active Substance: FENTANYL
  11. SERTRALINE [Suspect]
     Active Substance: SERTRALINE HYDROCHLORIDE
     Indication: DEPRESSION
     Route: 048
  12. BACLOFEN. [Concomitant]
     Active Substance: BACLOFEN
  13. QUININE [Concomitant]
     Active Substance: QUININE
  14. ERGOCALCIFEROL. [Concomitant]
     Active Substance: ERGOCALCIFEROL
  15. MORPHINE [Concomitant]
     Active Substance: MORPHINE

REACTIONS (3)
  - Hypoxia [Not Recovered/Not Resolved]
  - Respiratory failure [Not Recovered/Not Resolved]
  - Alveolar proteinosis [Not Recovered/Not Resolved]

NARRATIVE: CASE EVENT DATE: 20151107
